FAERS Safety Report 20350170 (Version 1)
Quarter: 2022Q1

REPORT INFORMATION
  Report Type: Spontaneous
  Country: EG (occurrence: EG)
  Receive Date: 20220119
  Receipt Date: 20220119
  Transmission Date: 20220423
  Serious: Yes (Life-Threatening)
  Sender: FDA-Public Use
  Company Number: EG-MYLANLABS-2022M1004208

PATIENT
  Age: 38 Week

DRUGS (24)
  1. EPINEPHRINE [Suspect]
     Active Substance: EPINEPHRINE
     Indication: Pulmonary hypertension
     Dosage: UP TO 1MG/KG/MIN
  2. EPINEPHRINE [Suspect]
     Active Substance: EPINEPHRINE
     Indication: Cardiogenic shock
  3. EPINEPHRINE [Suspect]
     Active Substance: EPINEPHRINE
     Indication: Supraventricular tachycardia
  4. NOREPINEPHRINE [Suspect]
     Active Substance: NOREPINEPHRINE
     Indication: Pulmonary hypertension
     Dosage: 0.5 MICROGRAM/KILOGRAM, QMINUTE
  5. NOREPINEPHRINE [Suspect]
     Active Substance: NOREPINEPHRINE
     Indication: Cardiogenic shock
  6. NOREPINEPHRINE [Suspect]
     Active Substance: NOREPINEPHRINE
     Indication: Supraventricular tachycardia
  7. DOPAMINE [Suspect]
     Active Substance: DOPAMINE HYDROCHLORIDE
     Indication: Pulmonary hypertension
     Dosage: 10 ML/KG
  8. DOPAMINE [Suspect]
     Active Substance: DOPAMINE HYDROCHLORIDE
     Indication: Cardiogenic shock
  9. DOPAMINE [Suspect]
     Active Substance: DOPAMINE HYDROCHLORIDE
     Indication: Supraventricular tachycardia
  10. DOBUTAMINE [Suspect]
     Active Substance: DOBUTAMINE HYDROCHLORIDE
     Indication: Pulmonary hypertension
     Dosage: 15 MICROGRAM/KILOGRAM, QMINUTE
  11. DOBUTAMINE [Suspect]
     Active Substance: DOBUTAMINE HYDROCHLORIDE
     Indication: Cardiogenic shock
  12. DOBUTAMINE [Suspect]
     Active Substance: DOBUTAMINE HYDROCHLORIDE
     Indication: Supraventricular tachycardia
  13. TERLIPRESSIN [Suspect]
     Active Substance: TERLIPRESSIN
     Indication: Pulmonary hypertension
     Dosage: 20 MILLIGRAM/KILOGRAM, QH
  14. TERLIPRESSIN [Suspect]
     Active Substance: TERLIPRESSIN
     Indication: Cardiogenic shock
  15. TERLIPRESSIN [Suspect]
     Active Substance: TERLIPRESSIN
     Indication: Supraventricular tachycardia
  16. MILRINONE [Suspect]
     Active Substance: MILRINONE
     Indication: Pulmonary hypertension
     Dosage: 25 MICROGRAM/KILOGRAM, QMINUTE
  17. MILRINONE [Suspect]
     Active Substance: MILRINONE
     Indication: Cardiogenic shock
  18. MILRINONE [Suspect]
     Active Substance: MILRINONE
     Indication: Supraventricular tachycardia
  19. LEVOSIMENDAN [Suspect]
     Active Substance: LEVOSIMENDAN
     Indication: Pulmonary hypertension
     Dosage: 0.1 UP TO 0.2 MICROG/KG/MIN
     Route: 042
  20. LEVOSIMENDAN [Suspect]
     Active Substance: LEVOSIMENDAN
     Indication: Cardiogenic shock
  21. LEVOSIMENDAN [Suspect]
     Active Substance: LEVOSIMENDAN
     Indication: Supraventricular tachycardia
  22. FUROSEMIDE [Concomitant]
     Active Substance: FUROSEMIDE
     Indication: Pulmonary hypertension
     Dosage: 0.1 MICROGRAM/KILOGRAM, QH
  23. FUROSEMIDE [Concomitant]
     Active Substance: FUROSEMIDE
     Indication: Cardiogenic shock
  24. FUROSEMIDE [Concomitant]
     Active Substance: FUROSEMIDE
     Indication: Supraventricular tachycardia

REACTIONS (2)
  - Drug ineffective [Unknown]
  - Off label use [Unknown]
